FAERS Safety Report 26034268 (Version 1)
Quarter: 2025Q4

REPORT INFORMATION
  Report Type: Other
  Country: MD (occurrence: MD)
  Receive Date: 20251112
  Receipt Date: 20251112
  Transmission Date: 20260117
  Serious: Yes (Other)
  Sender: LUPIN
  Company Number: MD-LUPIN PHARMACEUTICALS INC.-2025-10262

PATIENT
  Age: 61 Year
  Sex: Male
  Weight: 52 kg

DRUGS (1)
  1. LINEZOLID [Suspect]
     Active Substance: LINEZOLID
     Indication: Pulmonary tuberculosis
     Dosage: 600 MILLIGRAM, QD
     Dates: start: 20221221

REACTIONS (1)
  - Pain in extremity [Unknown]

NARRATIVE: CASE EVENT DATE: 20240618
